FAERS Safety Report 23877069 (Version 1)
Quarter: 2024Q2

REPORT INFORMATION
  Report Type: Spontaneous
  Country: US (occurrence: US)
  Receive Date: 20240521
  Receipt Date: 20240521
  Transmission Date: 20240715
  Serious: Yes (Other)
  Sender: FDA-Public Use
  Company Number: US-ORG100016242-2024000220

PATIENT

DRUGS (1)
  1. EXPAREL [Suspect]
     Active Substance: BUPIVACAINE
     Indication: Vascular operation
     Dosage: NOT PROVIDED
     Route: 065

REACTIONS (4)
  - Vascular graft occlusion [Unknown]
  - Post procedural haematoma [Unknown]
  - Endotracheal intubation complication [Unknown]
  - Off label use [Unknown]
